FAERS Safety Report 21595580 (Version 2)
Quarter: 2022Q4

REPORT INFORMATION
  Report Type: Spontaneous
  Country: PK (occurrence: PK)
  Receive Date: 20221115
  Receipt Date: 20221124
  Transmission Date: 20230113
  Serious: Yes (Hospitalization, Other)
  Sender: FDA-Public Use
  Company Number: None

PATIENT
  Age: 52 Year
  Sex: Male

DRUGS (7)
  1. CEFTRIAXONE [Suspect]
     Active Substance: CEFTRIAXONE
     Indication: Staphylococcal infection
     Dosage: 1 GRAM, BID
     Route: 042
  2. CEFTRIAXONE [Suspect]
     Active Substance: CEFTRIAXONE
     Indication: Escherichia infection
  3. CEFTRIAXONE [Suspect]
     Active Substance: CEFTRIAXONE
     Indication: Enterococcal infection
  4. LINEZOLID [Suspect]
     Active Substance: LINEZOLID
     Dosage: 600 MILLIGRAM, BID (EVERY 12 HOURS)
     Route: 048
  5. LINEZOLID [Suspect]
     Active Substance: LINEZOLID
     Dosage: 1600 MILLIGRAM, QD
     Route: 065
  6. LINEZOLID [Suspect]
     Active Substance: LINEZOLID
  7. LAVENDER [Concomitant]
     Active Substance: ALCOHOL
     Dosage: UNK
     Route: 065

REACTIONS (4)
  - Hallucination, auditory [Recovered/Resolved]
  - Toxicity to various agents [Recovered/Resolved]
  - Substance-induced psychotic disorder [Recovered/Resolved]
  - Hallucination, visual [Recovered/Resolved]
